FAERS Safety Report 8088543 (Version 3)
Quarter: 2013Q4

REPORT INFORMATION
  Report Type: Spontaneous
  Country: US (occurrence: US)
  Receive Date: 20110812
  Receipt Date: 20131218
  Transmission Date: 20140711
  Serious: Yes (Life-Threatening, Hospitalization)
  Sender: FDA-Public Use
  Company Number: US-BAYER-2011-071950

PATIENT
  Age: 35 Year
  Sex: Female
  Weight: 52.15 kg

DRUGS (16)
  1. YAZ [Suspect]
     Indication: CONTRACEPTION
     Dosage: UNK
     Dates: start: 2006, end: 2009
  2. YAZ [Suspect]
     Indication: PREMENSTRUAL SYNDROME
  3. YASMIN [Suspect]
     Indication: CONTRACEPTION
  4. YASMIN [Suspect]
     Indication: PREMENSTRUAL SYNDROME
  5. OCELLA [Suspect]
  6. HYDROCODONE W/ACETAMINOPHEN [Concomitant]
     Dosage: 5-500 1 Q4H
     Route: 048
     Dates: start: 2008, end: 200907
  7. FLUCONAZOLE [Concomitant]
     Dosage: 150 MG, UNK
     Route: 048
     Dates: start: 2008, end: 200907
  8. TRAMADOL [Concomitant]
     Indication: PAIN
     Dosage: 3 -4 X DAY,  PRN
     Route: 048
     Dates: start: 200905, end: 200907
  9. BUPROPION HYDROCHLORIDE [Concomitant]
     Dosage: 100 MG, UNK
     Route: 048
     Dates: start: 200904, end: 200907
  10. TEMAZEPAM [Concomitant]
     Indication: INSOMNIA
     Dosage: 15 MG, 1 OR 2 AT BEDTIME
     Route: 048
  11. IBUPROFEN [Concomitant]
     Indication: PAIN
     Dosage: 800 MG, TID
     Route: 048
     Dates: start: 2008, end: 2009
  12. CYCLOBENZAPRINE [Concomitant]
     Indication: MUSCLE SPASMS
     Dosage: 10 MG, ? TO 1 3 X DAILY
     Route: 048
  13. GUAIFENESIN [Concomitant]
     Indication: COUGH
     Dosage: 1-2 TABS Q12 H
     Route: 048
  14. NASAREL [Concomitant]
     Dosage: 2 SPRAYS TO EACH NOSTRIL, BID
     Dates: start: 20090714
  15. SINGULAIR [Concomitant]
     Dosage: 10 MG, QD
     Route: 048
     Dates: start: 20090714
  16. WELLBUTRIN [Concomitant]
     Dosage: UNK
     Dates: start: 20090701

REACTIONS (6)
  - Gallbladder non-functioning [None]
  - Cholecystitis chronic [None]
  - Internal injury [None]
  - Injury [None]
  - Pain [None]
  - General physical health deterioration [None]
